FAERS Safety Report 7742271-X (Version None)
Quarter: 2011Q3

REPORT INFORMATION
  Report Type: 
  Country: None (occurrence: None)
  Receive Date: 20110912
  Receipt Date: 20110901
  Transmission Date: 20111222
  Serious: Yes (Hospitalization, Other)
  Sender: FDA-Public Use
  Company Number: US-BAYER-201011829NA

PATIENT
  Age: 35 Year
  Sex: Female
  Weight: 75 kg

DRUGS (6)
  1. WELLBUTRIN XL [Concomitant]
  2. CYMBALTA [Concomitant]
     Indication: ANXIETY
     Dosage: UNK
     Dates: start: 20090101
  3. NASACORT AQ [Concomitant]
  4. YAZ [Suspect]
     Indication: PREMENSTRUAL SYNDROME
     Dates: start: 20071101, end: 20080110
  5. CYMBALTA [Concomitant]
     Indication: DEPRESSION
  6. PROZAC [Concomitant]

REACTIONS (4)
  - OEDEMA PERIPHERAL [None]
  - PAIN IN EXTREMITY [None]
  - DYSPNOEA [None]
  - PULMONARY EMBOLISM [None]
